FAERS Safety Report 4731390-8 (Version None)
Quarter: 2005Q3

REPORT INFORMATION
  Report Type: 
  Country: None (occurrence: None)
  Receive Date: 20050801
  Receipt Date: 20050718
  Transmission Date: 20060218
  Serious: Yes (Death, Life-Threatening, Hospitalization, Other)
  Sender: FDA-Public Use
  Company Number: GXKR2005US01182

PATIENT
  Age: 17 Year
  Sex: Female

DRUGS (5)
  1. CEFTRIAXONE (NGX) (CEFTRIAXONE) [Suspect]
     Indication: PNEUMONIA
  2. AZITHROMYCIN [Suspect]
     Indication: PNEUMONIA
  3. VANCOMYCIN [Concomitant]
  4. MANNITOL [Concomitant]
  5. CALCIUM BICARBONATE (CALCIUM HYDROGENCARBONATE) [Concomitant]

REACTIONS (21)
  - ACTIVATED PARTIAL THROMBOPLASTIN TIME PROLONGED [None]
  - ACUTE CHEST SYNDROME [None]
  - BLOOD PH DECREASED [None]
  - BODY TEMPERATURE INCREASED [None]
  - CARDIAC ARREST [None]
  - CARDIAC MURMUR [None]
  - CHEST PAIN [None]
  - CHROMATURIA [None]
  - CONFUSIONAL STATE [None]
  - HAEMOGLOBIN DECREASED [None]
  - HAEMOLYSIS [None]
  - HEPATIC FAILURE [None]
  - HEPATITIS [None]
  - HYPERAMMONAEMIA [None]
  - MULTI-ORGAN FAILURE [None]
  - PROTHROMBIN TIME PROLONGED [None]
  - RENAL FAILURE [None]
  - RESPIRATORY FAILURE [None]
  - SPLEEN PALPABLE [None]
  - TACHYCARDIA [None]
  - TACHYPNOEA [None]
